FAERS Safety Report 17587071 (Version 1)
Quarter: 2020Q1

REPORT INFORMATION
  Report Type: Spontaneous
  Country: US (occurrence: US)
  Receive Date: 20200326
  Receipt Date: 20200326
  Transmission Date: 20200409
  Serious: No
  Sender: FDA-Public Use
  Company Number: US-AKRON, INC.-2082007

PATIENT
  Sex: Female

DRUGS (1)
  1. DORZOLAMIDE HCL TIMOLOL MALEATE OPTHALMIC SOLUTION [Suspect]
     Active Substance: DORZOLAMIDE HYDROCHLORIDE\TIMOLOL MALEATE
     Route: 047
     Dates: start: 201904

REACTIONS (1)
  - Vertigo [Unknown]
